FAERS Safety Report 11443494 (Version 7)
Quarter: 2016Q4

REPORT INFORMATION
  Report Type: Report from Study
  Country: US (occurrence: US)
  Receive Date: 20150901
  Receipt Date: 20161025
  Transmission Date: 20170206
  Serious: Yes (Hospitalization, Other)
  Sender: FDA-Public Use
  Company Number: US-AMGEN-USASP2015088108

PATIENT
  Age: 50 Year
  Sex: Male

DRUGS (2)
  1. PLAVIX [Concomitant]
     Active Substance: CLOPIDOGREL BISULFATE
     Dosage: UNK
  2. ENBREL [Suspect]
     Active Substance: ETANERCEPT
     Indication: PSORIASIS
     Dosage: 50 MG, UNK
     Route: 065
     Dates: start: 2011

REACTIONS (6)
  - Aneurysm [Unknown]
  - Renal cancer [Unknown]
  - Coronary arterial stent insertion [Unknown]
  - Spinal compression fracture [Unknown]
  - Psoriasis [Unknown]
  - Inflammation [Unknown]

NARRATIVE: CASE EVENT DATE: 2014
